FAERS Safety Report 25980011 (Version 2)
Quarter: 2025Q4

REPORT INFORMATION
  Report Type: Spontaneous
  Country: US (occurrence: US)
  Receive Date: 20251030
  Receipt Date: 20251202
  Transmission Date: 20260117
  Serious: No
  Sender: VERTEX
  Company Number: US-VERTEX PHARMACEUTICALS-2025-017147

PATIENT
  Age: 66 Year

DRUGS (4)
  1. JOURNAVX [Suspect]
     Active Substance: SUZETRIGINE
     Indication: Pain
     Dosage: 2 X 50MG TABLETS (LOADING DOSE), SINGLE
  2. JOURNAVX [Suspect]
     Active Substance: SUZETRIGINE
     Dosage: 01 TABLET (50MG) EVERY 12 HOURS
  3. OXYCODONE [Concomitant]
     Active Substance: OXYCODONE
     Indication: Pain
     Dosage: 10 MG, QID (4 TIMES DAILY)
  4. TESTOSTERONE CYPIONATE [Concomitant]
     Active Substance: TESTOSTERONE CYPIONATE

REACTIONS (2)
  - Taste disorder [Not Recovered/Not Resolved]
  - Off label use [Unknown]
